FAERS Safety Report 6878086-4 (Version None)
Quarter: 2010Q2

REPORT INFORMATION
  Report Type: 
  Country: None (occurrence: None)
  Receive Date: 20100616
  Receipt Date: 20100225
  Transmission Date: 20101027
  Serious: No
  Sender: FDA-Public Use
  Company Number: DSA_42684_2010

PATIENT
  Sex: Female

DRUGS (7)
  1. XENAZINE [Suspect]
     Indication: DYSKINESIA
     Dosage: (25 MG BID ORAL)
     Route: 048
  2. DICYCLOMINE [Concomitant]
  3. SYNTHROID [Concomitant]
  4. EFFEXOR [Concomitant]
  5. PERCOCET [Concomitant]
  6. BELLADONNA EXTARCT [Concomitant]
  7. OXYCONTIN [Concomitant]

REACTIONS (3)
  - FATIGUE [None]
  - HYPOAESTHESIA [None]
  - MOVEMENT DISORDER [None]
